FAERS Safety Report 7137784-8 (Version None)
Quarter: 2010Q4

REPORT INFORMATION
  Report Type: 
  Country: None (occurrence: None)
  Receive Date: 20101119
  Receipt Date: 20101026
  Transmission Date: 20110411
  Serious: Yes (Life-Threatening)
  Sender: FDA-Public Use
  Company Number: 54973

PATIENT
  Age: 8 Month
  Sex: Male

DRUGS (1)
  1. HYLAND'S TEETHING TABLETS [Suspect]
     Indication: TEETHING
     Dosage: 2-3 TABS X 6 / DAY

REACTIONS (4)
  - APNOEA [None]
  - CONVULSION [None]
  - CYANOSIS [None]
  - RESPIRATORY ARREST [None]
